FAERS Safety Report 8585301-8 (Version None)
Quarter: 2012Q3

REPORT INFORMATION
  Report Type: 
  Country: None (occurrence: None)
  Receive Date: 20120810
  Receipt Date: 20120731
  Transmission Date: 20120928
  Serious: Yes (Other)
  Sender: FDA-Public Use
  Company Number: GB-ABBOTT-12P-167-0962783-00

PATIENT
  Sex: Female

DRUGS (1)
  1. CLARITHROMYCIN [Suspect]
     Indication: LOWER RESPIRATORY TRACT INFECTION
     Dosage: TO BE TAKEN EVERY 12 HOURS
     Route: 065

REACTIONS (4)
  - HYPERVIGILANCE [None]
  - THINKING ABNORMAL [None]
  - INSOMNIA [None]
  - FATIGUE [None]
